FAERS Safety Report 22533843 (Version 1)
Quarter: 2023Q2

REPORT INFORMATION
  Report Type: Report from Study
  Country: CA (occurrence: CA)
  Receive Date: 20230608
  Receipt Date: 20230608
  Transmission Date: 20230721
  Serious: Yes (Death)
  Sender: FDA-Public Use
  Company Number: CA-ABBVIE-5281231

PATIENT
  Age: 77 Year
  Sex: Male

DRUGS (3)
  1. VENCLEXTA [Suspect]
     Active Substance: VENETOCLAX
     Indication: Acute myeloid leukaemia
     Dosage: TIME INTERVAL: 0.16666667 DAYS
     Route: 048
     Dates: start: 20230411, end: 20230531
  2. AZACITIDINE [Concomitant]
     Active Substance: AZACITIDINE
     Indication: Disease progression
     Dosage: 75 MG/M2
     Dates: start: 201809, end: 202303
  3. CYTARABINE [Concomitant]
     Active Substance: CYTARABINE
     Indication: Product used for unknown indication
     Dosage: 20 MG/M2 SQ ONCE DAILY ON DAYS 1 TO 10 EVERY 28 DAYS

REACTIONS (2)
  - Death [Fatal]
  - Off label use [Unknown]

NARRATIVE: CASE EVENT DATE: 20230531
